FAERS Safety Report 15710606 (Version 1)
Quarter: 2018Q4

REPORT INFORMATION
  Report Type: Other
  Country: None (occurrence: US)
  Receive Date: 20181211
  Receipt Date: 20181211
  Transmission Date: 20190205
  Serious: Yes (Life-Threatening)
  Sender: FDA-Public Use
  Company Number: US-STANDARD HOMEOPATHIC COMPANY-2060030

PATIENT
  Sex: Female

DRUGS (1)
  1. HYLAND^S LEG CRAMPS TABLETS PM [Suspect]
     Active Substance: HOMEOPATHICS
     Indication: MUSCLE SPASMS
     Route: 048
     Dates: start: 20181114, end: 20181201

REACTIONS (1)
  - Arterial rupture [None]

NARRATIVE: CASE EVENT DATE: 20181201
